FAERS Safety Report 10245495 (Version 1)
Quarter: 2014Q2

REPORT INFORMATION
  Report Type: Spontaneous
  Country: SE (occurrence: SE)
  Receive Date: 20140618
  Receipt Date: 20140618
  Transmission Date: 20141212
  Serious: Yes (Death)
  Sender: FDA-Public Use
  Company Number: SE-MERCK-1406SWE007665

PATIENT
  Age: 64 Year
  Sex: Female

DRUGS (2)
  1. TEMODAL [Suspect]
     Indication: PANCREATIC NEUROENDOCRINE TUMOUR METASTATIC
     Dosage: 250 MG QD
     Route: 048
     Dates: start: 20140507, end: 20140511
  2. CAPECITABINE [Suspect]
     Indication: PANCREATIC NEUROENDOCRINE TUMOUR METASTATIC
     Dosage: 1500 MG BID
     Route: 048
     Dates: start: 20140428, end: 20140511

REACTIONS (2)
  - Mucous membrane disorder [Fatal]
  - Bone marrow failure [Fatal]
